FAERS Safety Report 5867205-4 (Version None)
Quarter: 2008Q3

REPORT INFORMATION
  Report Type: 
  Country: None (occurrence: None)
  Receive Date: 20080829
  Receipt Date: 20080829
  Transmission Date: 20090109
  Serious: Yes (Life-Threatening, Other)
  Sender: FDA-Public Use
  Company Number: None

PATIENT
  Age: 30 Year
  Sex: Male
  Weight: 99.7913 kg

DRUGS (1)
  1. CHANTIX [Suspect]
     Indication: SMOKING CESSATION THERAPY
     Dosage: 1 MG TWICE A DAY PO
     Route: 048
     Dates: start: 20080519, end: 20080704

REACTIONS (8)
  - AGGRESSION [None]
  - ALCOHOL USE [None]
  - AMNESIA [None]
  - DEPRESSION [None]
  - HALLUCINATIONS, MIXED [None]
  - HAND FRACTURE [None]
  - INTENTIONAL SELF-INJURY [None]
  - SUICIDAL IDEATION [None]
